FAERS Safety Report 6644784-0 (Version None)
Quarter: 2010Q1

REPORT INFORMATION
  Report Type: 
  Country: None (occurrence: None)
  Receive Date: 20100322
  Receipt Date: 20100315
  Transmission Date: 20100710
  Serious: Yes (Other)
  Sender: FDA-Public Use
  Company Number: US-AMGEN-KDC399699

PATIENT
  Age: 58 Year
  Sex: Female
  Weight: 35.7 kg

DRUGS (3)
  1. PANITUMUMAB [Suspect]
     Indication: PANCREATIC CARCINOMA
     Dates: start: 20091104
  2. FLUOROURACIL [Suspect]
     Dates: start: 20091104
  3. RADIATION THERAPY [Suspect]
     Dates: start: 20091104

REACTIONS (1)
  - LYMPHOPENIA [None]
